FAERS Safety Report 5217065-X (Version None)
Quarter: 2007Q1

REPORT INFORMATION
  Report Type: 
  Country: None (occurrence: None)
  Receive Date: 20070124
  Receipt Date: 20070116
  Transmission Date: 20070707
  Serious: Yes (Hospitalization)
  Sender: FDA-Public Use
  Company Number: US-PURDUE-USA_2007_0026191

PATIENT
  Age: 32 Year
  Sex: Female

DRUGS (1)
  1. OXYCONTIN [Suspect]
     Indication: HEADACHE
     Dosage: 40 MG, Q8H

REACTIONS (1)
  - UNRESPONSIVE TO STIMULI [None]
